FAERS Safety Report 4367882-3 (Version None)
Quarter: 2004Q2

REPORT INFORMATION
  Report Type: 
  Country: None (occurrence: None)
  Receive Date: 20040601
  Receipt Date: 20040601
  Transmission Date: 20050107
  Serious: Yes (Death)
  Sender: FDA-Public Use
  Company Number: None

PATIENT
  Age: 37 Year
  Sex: Female
  Weight: 69.8539 kg

DRUGS (1)
  1. TAXOL [Suspect]

REACTIONS (4)
  - CARDIOGENIC SHOCK [None]
  - CHEST PAIN [None]
  - MEDICAL DEVICE COMPLICATION [None]
  - STENT OCCLUSION [None]
